FAERS Safety Report 5642500-2 (Version None)
Quarter: 2008Q1

REPORT INFORMATION
  Report Type: 
  Country: None (occurrence: None)
  Receive Date: 20080227
  Receipt Date: 20080227
  Transmission Date: 20080703
  Serious: Yes (Hospitalization, Other)
  Sender: FDA-Public Use
  Company Number: None

PATIENT
  Age: 63 Year
  Sex: Female

DRUGS (15)
  1. FOSAMAX [Suspect]
     Indication: OSTEOPOROSIS
     Dosage: 40MG DAILY; 70 MG WEEKLY
     Dates: start: 19990101, end: 20041101
  2. ASPIRIN [Concomitant]
  3. DARVOCET [Concomitant]
  4. MIRAPEX [Concomitant]
  5. CALCIUM [Concomitant]
  6. DIOVAN [Concomitant]
  7. METHOTREXATE [Concomitant]
  8. CELEBREX [Concomitant]
  9. FOLIC ACID [Concomitant]
  10. PLAVIX [Concomitant]
  11. EFFEXOR [Concomitant]
  12. NEXIUM [Concomitant]
  13. PREDNISONE [Concomitant]
  14. TEMAZEPAM [Concomitant]
  15. TRAZODONE HCL [Concomitant]

REACTIONS (4)
  - BONE DISORDER [None]
  - IMPAIRED HEALING [None]
  - OSTEONECROSIS [None]
  - SOFT TISSUE DISORDER [None]
